FAERS Safety Report 22943433 (Version 5)
Quarter: 2025Q2

REPORT INFORMATION
  Report Type: Spontaneous
  Country: IN (occurrence: IN)
  Receive Date: 20230914
  Receipt Date: 20250617
  Transmission Date: 20250716
  Serious: Yes (Other)
  Sender: PFIZER
  Company Number: IN-PFIZER INC-2020222306

PATIENT
  Age: 65 Year
  Sex: Female
  Weight: 68 kg

DRUGS (4)
  1. CRIZOTINIB [Suspect]
     Active Substance: CRIZOTINIB
     Indication: Non-small cell lung cancer
     Route: 048
     Dates: start: 20170320
  2. CRIZOTINIB [Suspect]
     Active Substance: CRIZOTINIB
     Dosage: 250 MG, 2X/DAY
     Route: 048
     Dates: start: 20180504
  3. BECOSULES [ASCORBIC ACID;BIOTIN;CALCIUM PANTOTHENATE;CYANOCOBALAMIN;FO [Concomitant]
     Dosage: 1, 1X/DAY
  4. PANTOP D SR [Concomitant]
     Dosage: 1, 1X/DAY

REACTIONS (28)
  - Spinal osteoarthritis [Unknown]
  - Anaemia [Unknown]
  - Hepatic steatosis [Unknown]
  - Hypertransaminasaemia [Unknown]
  - Vitamin D deficiency [Not Recovered/Not Resolved]
  - Basophil count decreased [Not Recovered/Not Resolved]
  - Blood alkaline phosphatase increased [Unknown]
  - Blood pressure increased [Unknown]
  - Haemoglobin decreased [Unknown]
  - Haematocrit decreased [Unknown]
  - Heart rate decreased [Recovered/Resolved]
  - Mean cell haemoglobin decreased [Not Recovered/Not Resolved]
  - Mean cell volume decreased [Not Recovered/Not Resolved]
  - Mean platelet volume increased [Not Recovered/Not Resolved]
  - Platelet count decreased [Recovered/Resolved]
  - Red blood cell count decreased [Unknown]
  - Red cell distribution width increased [Unknown]
  - Blood albumin decreased [Unknown]
  - Blood calcium decreased [Unknown]
  - Blood creatinine increased [Unknown]
  - Monocyte count decreased [Unknown]
  - Aspartate aminotransferase increased [Unknown]
  - Alanine aminotransferase increased [Unknown]
  - Blood lactate dehydrogenase increased [Unknown]
  - Protein total decreased [Unknown]
  - Blood uric acid abnormal [Unknown]
  - Albumin globulin ratio decreased [Unknown]
  - Eastern Cooperative Oncology Group performance status worsened [Unknown]

NARRATIVE: CASE EVENT DATE: 20210304
